FAERS Safety Report 16952239 (Version 1)
Quarter: 2019Q4

REPORT INFORMATION
  Report Type: Report from Study
  Country: GB (occurrence: GB)
  Receive Date: 20191023
  Receipt Date: 20191023
  Transmission Date: 20200122
  Serious: Yes (Hospitalization, Other)
  Sender: FDA-Public Use
  Company Number: GB-KARYOPHARM-2018KPT000036

PATIENT
  Age: 68 Year
  Sex: Male
  Weight: 64 kg

DRUGS (5)
  1. TAZOCIN [Concomitant]
     Active Substance: PIPERACILLIN SODIUM\TAZOBACTAM SODIUM
     Indication: ANTIBIOTIC PROPHYLAXIS
     Dosage: 4500 MG, TDS
     Dates: start: 20180108
  2. SELINEXOR [Suspect]
     Active Substance: SELINEXOR
     Indication: DIFFUSE LARGE B-CELL LYMPHOMA
     Dosage: 60 MG, 2X/WEEK
     Route: 048
     Dates: start: 20171129
  3. DEXAMETHASONE. [Concomitant]
     Active Substance: DEXAMETHASONE
     Indication: DECREASED APPETITE
     Dosage: 12 MG, WEEKLY
     Dates: start: 20171129
  4. DEXAMETHASONE. [Concomitant]
     Active Substance: DEXAMETHASONE
     Indication: DECREASED APPETITE
     Dosage: 8 MG, 2X/WEEK
     Dates: start: 20171130
  5. CIPROFLOXACIN                      /00697203/ [Concomitant]
     Active Substance: CIPROFLOXACIN LACTATE
     Indication: ANTIBIOTIC PROPHYLAXIS
     Dosage: 500 MG, BD
     Dates: start: 20180108

REACTIONS (3)
  - Weight decreased [Recovered/Resolved]
  - Decreased appetite [Recovered/Resolved]
  - Urinary tract infection [Recovered/Resolved with Sequelae]

NARRATIVE: CASE EVENT DATE: 201801
